FAERS Safety Report 11837643 (Version 1)
Quarter: 2015Q4

REPORT INFORMATION
  Report Type: Report from Study
  Country: CA (occurrence: CA)
  Receive Date: 20151215
  Receipt Date: 20151215
  Transmission Date: 20160305
  Serious: Yes (Other)
  Sender: FDA-Public Use
  Company Number: CA-JNJFOC-20151105399

PATIENT
  Age: 13 Year
  Sex: Female
  Weight: 47 kg

DRUGS (2)
  1. REMICADE [Suspect]
     Active Substance: INFLIXIMAB
     Indication: CROHN^S DISEASE
     Dosage: 1ST DOSE
     Route: 042
     Dates: start: 20151021
  2. REMICADE [Suspect]
     Active Substance: INFLIXIMAB
     Indication: CROHN^S DISEASE
     Dosage: 1ST DOSE
     Route: 042
     Dates: start: 20151109

REACTIONS (11)
  - Dyspnoea [Recovered/Resolved]
  - Vomiting [Recovered/Resolved]
  - Abdominal distension [Unknown]
  - Heart rate increased [Recovered/Resolved]
  - Gastrooesophageal reflux disease [Unknown]
  - Oxygen saturation decreased [Recovered/Resolved]
  - Alopecia [Unknown]
  - Infusion related reaction [Recovered/Resolved]
  - Emotional distress [Recovered/Resolved]
  - Nausea [Recovered/Resolved]
  - Nasopharyngitis [Not Recovered/Not Resolved]

NARRATIVE: CASE EVENT DATE: 2015
